FAERS Safety Report 13915938 (Version 2)
Quarter: 2017Q4

REPORT INFORMATION
  Report Type: Spontaneous
  Country: JP (occurrence: JP)
  Receive Date: 20170829
  Receipt Date: 20171114
  Transmission Date: 20180320
  Serious: Yes (Other)
  Sender: FDA-Public Use
  Company Number: JP-ROCHE-1983805

PATIENT
  Age: 47 Year
  Sex: Male

DRUGS (2)
  1. AVASTIN [Suspect]
     Active Substance: BEVACIZUMAB
     Indication: LUNG NEOPLASM MALIGNANT
     Dosage: DOSAGE WAS UNCERTAIN.
     Route: 041
  2. PEMETREXED SODIUM HYDRATE [Concomitant]
     Active Substance: PEMETREXED
     Indication: LUNG NEOPLASM MALIGNANT
     Dosage: DOSAGE WAS UNCERTAIN
     Route: 041

REACTIONS (3)
  - Central nervous system necrosis [Unknown]
  - Brain oedema [Unknown]
  - Renal impairment [Unknown]
